FAERS Safety Report 13462226 (Version 1)
Quarter: 2017Q2

REPORT INFORMATION
  Report Type: Spontaneous
  Country: DE (occurrence: DE)
  Receive Date: 20170420
  Receipt Date: 20170420
  Transmission Date: 20170830
  Serious: Yes (Death)
  Sender: FDA-Public Use
  Company Number: DE-TEVA-759816GER

PATIENT
  Age: 89 Year
  Sex: Female

DRUGS (7)
  1. CEFTRIAXON [Suspect]
     Active Substance: CEFTRIAXONE
     Indication: CHOLECYSTITIS ACUTE
     Dosage: 2 GRAM DAILY;
     Route: 042
     Dates: start: 20170227, end: 201703
  2. METRONIDAZOL [Concomitant]
     Active Substance: METRONIDAZOLE
     Indication: CHOLECYSTITIS
     Dosage: 1 MILLIGRAM DAILY;
     Route: 042
     Dates: start: 20170227, end: 20170310
  3. PANTOPRAZOL [Concomitant]
     Active Substance: PANTOPRAZOLE SODIUM
     Indication: PROPHYLAXIS AGAINST GASTROINTESTINAL ULCER
     Dosage: 40 MILLIGRAM DAILY;
     Route: 048
  4. AMLODIPIN [Concomitant]
     Active Substance: AMLODIPINE BESYLATE
     Indication: HYPERTENSION
     Dosage: 5 MILLIGRAM DAILY;
     Route: 048
  5. PIPERACILLIN AND TAZOBACTAM [Concomitant]
     Active Substance: PIPERACILLIN SODIUM\TAZOBACTAM SODIUM
     Indication: PNEUMONIA
     Dosage: 13.5 MILLIGRAM DAILY;
     Route: 042
     Dates: start: 20170218, end: 20170221
  6. TORASEMID [Concomitant]
     Active Substance: TORSEMIDE
     Indication: HYPERTENSION
     Dosage: 5 MILLIGRAM DAILY;
     Route: 048
  7. METOPROLOL. [Concomitant]
     Active Substance: METOPROLOL
     Indication: HYPERTENSION
     Dosage: 190 MILLIGRAM DAILY;
     Route: 048

REACTIONS (4)
  - Clostridium difficile colitis [Fatal]
  - Dehydration [Fatal]
  - Hypokalaemia [Fatal]
  - Pseudomembranous colitis [Fatal]

NARRATIVE: CASE EVENT DATE: 20170301
